FAERS Safety Report 4465739-0 (Version None)
Quarter: 2004Q3

REPORT INFORMATION
  Report Type: 
  Country: None (occurrence: None)
  Receive Date: 20040929
  Receipt Date: 20040929
  Transmission Date: 20050211
  Serious: Yes (Other)
  Sender: FDA-Public Use
  Company Number: None

PATIENT
  Sex: Male
  Weight: 87.5442 kg

DRUGS (8)
  1. AREDIA [Suspect]
     Indication: MULTIPLE MYELOMA
  2. MORPHINE [Concomitant]
  3. SENNA [Concomitant]
  4. COMPAZINE [Concomitant]
  5. ROXICODONE [Concomitant]
  6. ZOCOR [Concomitant]
  7. ALLEGRA [Concomitant]
  8. OXYCODONE HCL [Concomitant]

REACTIONS (1)
  - FISTULA [None]
